FAERS Safety Report 9840978 (Version 4)
Quarter: 2014Q1

REPORT INFORMATION
  Report Type: Spontaneous
  Country: US (occurrence: US)
  Receive Date: 20140124
  Receipt Date: 20140319
  Transmission Date: 20141002
  Serious: No
  Sender: FDA-Public Use
  Company Number: US-ASTELLAS-2014US000107

PATIENT
  Sex: Male

DRUGS (4)
  1. XTANDI [Suspect]
     Indication: PROSTATE CANCER
     Dosage: 160 MG, UID/QD
     Route: 048
  2. ANALGESICS [Suspect]
     Indication: PAIN
     Dosage: UNK
     Route: 065
  3. XANAX [Concomitant]
     Indication: ANXIETY
     Dosage: 0.5 MG, BID
     Route: 048
  4. LORAZEPAM [Concomitant]
     Indication: ANXIETY
     Dosage: 0.5 MG, PRN
     Route: 048

REACTIONS (1)
  - No adverse event [Unknown]
